FAERS Safety Report 12314503 (Version 1)
Quarter: 2016Q2

REPORT INFORMATION
  Report Type: Spontaneous
  Country: US (occurrence: US)
  Receive Date: 20160428
  Receipt Date: 20160428
  Transmission Date: 20160815
  Serious: No
  Sender: FDA-Public Use
  Company Number: US-GLAXOSMITHKLINE-US2016058190

PATIENT
  Age: 25 Year
  Sex: Male

DRUGS (2)
  1. EQUATE NICOTINE [Suspect]
     Active Substance: NICOTINE
     Indication: SMOKING CESSATION THERAPY
     Dosage: 21 MG, UNK
     Route: 062
     Dates: start: 20160418, end: 20160421
  2. EQUATE NICOTINE [Suspect]
     Active Substance: NICOTINE
     Dosage: UNK

REACTIONS (6)
  - Application site urticaria [Recovered/Resolved]
  - Nausea [Recovered/Resolved]
  - Application site vesicles [Recovered/Resolved]
  - Vomiting [Recovered/Resolved]
  - Vision blurred [Recovered/Resolved]
  - Hypertension [Recovered/Resolved]

NARRATIVE: CASE EVENT DATE: 20160421
